FAERS Safety Report 13903385 (Version 2)
Quarter: 2017Q4

REPORT INFORMATION
  Report Type: Spontaneous
  Country: US (occurrence: US)
  Receive Date: 20170824
  Receipt Date: 20171023
  Transmission Date: 20180320
  Serious: No
  Sender: FDA-Public Use
  Company Number: US-PFIZER INC-2017361393

PATIENT
  Sex: Male

DRUGS (5)
  1. ASPIRIN. [Suspect]
     Active Substance: ASPIRIN
     Dosage: UNK
  2. HUMIRA [Suspect]
     Active Substance: ADALIMUMAB
     Dosage: UNK
  3. NAPROXEN. [Suspect]
     Active Substance: NAPROXEN
     Dosage: UNK
  4. METHOTREXATE SODIUM. [Suspect]
     Active Substance: METHOTREXATE SODIUM
     Dosage: UNK
  5. CODEINE [Suspect]
     Active Substance: CODEINE
     Dosage: UNK

REACTIONS (1)
  - Drug hypersensitivity [Unknown]
